FAERS Safety Report 7563672-9 (Version None)
Quarter: 2011Q2

REPORT INFORMATION
  Report Type: 
  Country: None (occurrence: None)
  Receive Date: 20110615
  Receipt Date: 20110601
  Transmission Date: 20111010
  Serious: Yes (Disabling)
  Sender: FDA-Public Use
  Company Number: 1000020196

PATIENT
  Age: 75 Year
  Sex: Female

DRUGS (10)
  1. ESCITALOPRAM [Suspect]
     Indication: DEPRESSION
     Dosage: 5 MG (5 MG,1 IN 1 D),ORAL
     Route: 048
     Dates: start: 20100810, end: 20101201
  2. LIPITAC (OMEGA-3) (OMEGA-3) [Concomitant]
  3. CALCIUM AND MAGNESIUM (CALCIUM, MAGNESIUM) (CALCIUM, MAGNESIUM) [Concomitant]
  4. ELTROXIN (LEVOTHYROXINE SODIUM) (TABLETS) (LEVOTHYROXINE SODIUM) [Concomitant]
  5. LECITHIN (LECITHIN) (LECITHIN) [Concomitant]
  6. ALCOHOL (ETHANOL) (ETHANOL) [Concomitant]
  7. ONE A DAY (MULTIVITAMINS) (MULTIVITAMINS) [Concomitant]
  8. VITAMIN B 50 (THIAMINE HYDROCHLORIDE) (THIAMINE HYDROCHLORIDE) [Concomitant]
  9. VITAMIN E (TOCOPHEROL) (TOCOPHEROL) [Concomitant]
  10. VITAMIN C (ASCORBIC ACID) (ASCORBIC ACID) [Concomitant]

REACTIONS (10)
  - ANAL PRURITUS [None]
  - BURSA DISORDER [None]
  - ARTHRALGIA [None]
  - GAIT DISTURBANCE [None]
  - HAEMORRHOIDAL HAEMORRHAGE [None]
  - PRODUCT QUALITY ISSUE [None]
  - VISION BLURRED [None]
  - MYALGIA [None]
  - PRURITUS [None]
  - VARICOSE VEIN [None]
